FAERS Safety Report 12503279 (Version 1)
Quarter: 2016Q2

REPORT INFORMATION
  Report Type: Spontaneous
  Country: DE (occurrence: DE)
  Receive Date: 20160628
  Receipt Date: 20160628
  Transmission Date: 20160815
  Serious: Yes (Other)
  Sender: FDA-Public Use
  Company Number: DE-ABBVIE-16K-062-1659810-00

PATIENT
  Sex: Female

DRUGS (1)
  1. HUMIRA [Suspect]
     Active Substance: ADALIMUMAB
     Indication: POLYARTHRITIS
     Route: 058
     Dates: start: 20150101, end: 201603

REACTIONS (7)
  - Infectious pleural effusion [Recovering/Resolving]
  - Pharyngitis [Recovering/Resolving]
  - Acute kidney injury [Recovering/Resolving]
  - Herpes simplex [Recovering/Resolving]
  - Tracheitis [Recovering/Resolving]
  - Sepsis [Recovering/Resolving]
  - Laryngitis [Recovering/Resolving]

NARRATIVE: CASE EVENT DATE: 20160419
